FAERS Safety Report 7914368-2 (Version None)
Quarter: 2011Q4

REPORT INFORMATION
  Report Type: 
  Country: None (occurrence: None)
  Receive Date: 20111115
  Receipt Date: 20111102
  Transmission Date: 20120403
  Serious: Yes (Other)
  Sender: FDA-Public Use
  Company Number: US-ELI_LILLY_AND_COMPANY-US201111000607

PATIENT
  Sex: Female

DRUGS (14)
  1. GLYBURIDE [Concomitant]
     Dosage: UNK
     Route: 048
  2. LASIX [Concomitant]
     Dosage: UNK
     Route: 048
  3. BYETTA [Suspect]
     Indication: TYPE 2 DIABETES MELLITUS
     Dosage: 5 UG, UNK
     Route: 058
     Dates: start: 20111001
  4. CITALOPRAM HYDROBROMIDE [Concomitant]
     Dosage: UNK
     Route: 048
  5. SPIRONOLACTONE [Concomitant]
     Dosage: UNK
     Route: 048
  6. FLOVENT [Concomitant]
     Dosage: UNK
     Route: 048
  7. COUMADIN [Concomitant]
     Dosage: 5 UG, QD
     Route: 048
     Dates: start: 20090101
  8. DILTIAZEM HCL [Concomitant]
     Dosage: UNK
     Route: 048
  9. TIKOSYN [Concomitant]
     Dosage: UNK
     Route: 048
  10. DIOVAN [Concomitant]
     Dosage: UNK
     Route: 048
  11. XANAX [Concomitant]
     Dosage: UNK
     Route: 048
  12. COREG [Concomitant]
     Dosage: UNK
     Route: 048
  13. FLEXERIL [Concomitant]
     Dosage: UNK
     Route: 048
  14. POTASSIUM [Concomitant]
     Dosage: UNK
     Route: 048

REACTIONS (1)
  - EYE HAEMORRHAGE [None]
